FAERS Safety Report 14337070 (Version 1)
Quarter: 2017Q4

REPORT INFORMATION
  Report Type: Spontaneous
  Country: US (occurrence: US)
  Receive Date: 20171228
  Receipt Date: 20171228
  Transmission Date: 20180321
  Serious: Yes (Disabling)
  Sender: FDA-Public Use
  Company Number: None

PATIENT
  Age: 62 Year
  Sex: Male
  Weight: 69.75 kg

DRUGS (2)
  1. BOTOX [Suspect]
     Active Substance: ONABOTULINUMTOXINA
     Indication: SKIN WRINKLING
     Dosage: ?          OTHER FREQUENCY:NONE;?
     Dates: start: 20171023, end: 20171023
  2. MULTI VITAMINE [Concomitant]

REACTIONS (8)
  - Pulmonary congestion [None]
  - Nasal cavity mass [None]
  - Nasopharyngitis [None]
  - Rhinitis [None]
  - Tinnitus [None]
  - Headache [None]
  - Fluid retention [None]
  - Hypoacusis [None]

NARRATIVE: CASE EVENT DATE: 20171023
